FAERS Safety Report 20691479 (Version 1)
Quarter: 2022Q2

REPORT INFORMATION
  Report Type: Spontaneous
  Country: TW (occurrence: TW)
  Receive Date: 20220408
  Receipt Date: 20220408
  Transmission Date: 20220721
  Serious: Yes (Life-Threatening, Hospitalization, Other)
  Sender: FDA-Public Use
  Company Number: TW-LUPIN PHARMACEUTICALS INC.-2022-05209

PATIENT
  Age: 75 Year
  Sex: Male

DRUGS (3)
  1. METHYLPREDNISOLONE [Suspect]
     Active Substance: METHYLPREDNISOLONE
     Indication: Drug reaction with eosinophilia and systemic symptoms
     Dosage: UNK UNK, QD (AVERAGE DOSE: 0.44(MG/KG/D),MAX DOSE: 1.1 (MG/KG/D) FOR 47 DAYS)
     Route: 042
  2. METHYLPREDNISOLONE [Suspect]
     Active Substance: METHYLPREDNISOLONE
     Dosage: UNK UNK, QD (AVERAGE DOSE: 0.44(MG/KG/D),MAX DOSE: 1.1 (MG/KG/D) FOR 47 DAYS)
     Route: 048
  3. METHYLPREDNISOLONE [Suspect]
     Active Substance: METHYLPREDNISOLONE
     Dosage: UNK (TAPERING)
     Route: 065

REACTIONS (3)
  - Rebound effect [Unknown]
  - Adrenal insufficiency [Recovering/Resolving]
  - Hyperglycaemia [Unknown]
